FAERS Safety Report 8032580-1 (Version None)
Quarter: 2011Q4

REPORT INFORMATION
  Report Type: 
  Country: None (occurrence: None)
  Receive Date: 20111223
  Receipt Date: 20111215
  Transmission Date: 20120403
  Serious: Yes (Hospitalization, Other)
  Sender: FDA-Public Use
  Company Number: 2011SP026441

PATIENT
  Age: 30 Year
  Sex: Female
  Weight: 110.2241 kg

DRUGS (3)
  1. NUVARING [Suspect]
     Dates: start: 20080703, end: 20090626
  2. NUVARING [Suspect]
     Dates: start: 20040501, end: 20070910
  3. NUVARING [Suspect]
     Dates: start: 20060601, end: 20090626

REACTIONS (45)
  - PULMONARY EMBOLISM [None]
  - MUSCULOSKELETAL PAIN [None]
  - PAIN IN EXTREMITY [None]
  - ARTHRITIS [None]
  - INTERVERTEBRAL DISC DEGENERATION [None]
  - INTERVERTEBRAL DISC PROTRUSION [None]
  - INCORRECT DRUG ADMINISTRATION DURATION [None]
  - HEADACHE [None]
  - HYPOAESTHESIA [None]
  - SPINAL OSTEOARTHRITIS [None]
  - FIBROMYALGIA [None]
  - IRRITABLE BOWEL SYNDROME [None]
  - THIRST [None]
  - BREAST DISCHARGE [None]
  - EXOSTOSIS [None]
  - GASTROOESOPHAGEAL REFLUX DISEASE [None]
  - ABDOMINAL PAIN [None]
  - SOMNOLENCE [None]
  - DISSOCIATION [None]
  - ANXIETY [None]
  - SINUSITIS [None]
  - MATERNAL EXPOSURE BEFORE PREGNANCY [None]
  - VULVOVAGINAL DRYNESS [None]
  - MULTIPLE INJURIES [None]
  - URINARY HESITATION [None]
  - FATIGUE [None]
  - BREAST TENDERNESS [None]
  - AMNESIA [None]
  - ASTHENIA [None]
  - PELVIC PAIN [None]
  - NARCOLEPSY [None]
  - HYPERCOAGULATION [None]
  - HAEMORRHAGIC DIATHESIS [None]
  - DEEP VEIN THROMBOSIS [None]
  - C-REACTIVE PROTEIN INCREASED [None]
  - BACK PAIN [None]
  - DIZZINESS [None]
  - BREAST PAIN [None]
  - DEPRESSION [None]
  - ARTHRALGIA [None]
  - ADNEXA UTERI PAIN [None]
  - SNORING [None]
  - VAGINAL HAEMORRHAGE [None]
  - NIGHT SWEATS [None]
  - VOMITING [None]
